FAERS Safety Report 5637959-0 (Version None)
Quarter: 2008Q1

REPORT INFORMATION
  Report Type: 
  Country: None (occurrence: None)
  Receive Date: 20080222
  Receipt Date: 20080222
  Transmission Date: 20080703
  Serious: Yes (Hospitalization)
  Sender: FDA-Public Use
  Company Number: None

PATIENT
  Sex: Male
  Weight: 74.5 kg

DRUGS (2)
  1. CYCLOPHOSPHAMIDE [Suspect]
     Dosage: 5730 MG
     Dates: end: 20080128
  2. SOTALOL HCL [Concomitant]

REACTIONS (2)
  - ATRIAL FIBRILLATION [None]
  - HYPERSENSITIVITY [None]
